FAERS Safety Report 9006698 (Version 1)
Quarter: 2013Q1

REPORT INFORMATION
  Report Type: Spontaneous
  Country: EG (occurrence: EG)
  Receive Date: 20130110
  Receipt Date: 20130110
  Transmission Date: 20140127
  Serious: Yes (Other)
  Sender: FDA-Public Use
  Company Number: EG-ROCHE-1178072

PATIENT
  Age: 23 Year
  Sex: Female

DRUGS (1)
  1. ACTEMRA [Suspect]
     Indication: JUVENILE IDIOPATHIC ARTHRITIS
     Route: 041

REACTIONS (2)
  - Blood glucose increased [Recovered/Resolved]
  - Allergic bronchitis [Recovered/Resolved]
